FAERS Safety Report 8574689-X (Version None)
Quarter: 2012Q3

REPORT INFORMATION
  Report Type: 
  Country: None (occurrence: None)
  Receive Date: 20120807
  Receipt Date: 20120727
  Transmission Date: 20120928
  Serious: Yes (Hospitalization)
  Sender: FDA-Public Use
  Company Number: DE-BIOGENIDEC-2012BI027723

PATIENT
  Age: 71 Year
  Sex: Female
  Weight: 49 kg

DRUGS (3)
  1. AVONEX [Suspect]
     Indication: MULTIPLE SCLEROSIS
     Route: 030
     Dates: start: 20040101
  2. TRAMADOL HCL [Concomitant]
     Indication: INTERVERTEBRAL DISC PROTRUSION
  3. NEUROGIN [Concomitant]
     Indication: INTERVERTEBRAL DISC PROTRUSION

REACTIONS (7)
  - COLON NEOPLASM [None]
  - THYROID NEOPLASM [None]
  - ADVERSE DRUG REACTION [None]
  - VERTIGO [None]
  - WEIGHT DECREASED [None]
  - INFLUENZA LIKE ILLNESS [None]
  - METASTATIC NEOPLASM [None]
